FAERS Safety Report 6771744-1 (Version None)
Quarter: 2010Q2

REPORT INFORMATION
  Report Type: 
  Country: None (occurrence: None)
  Receive Date: 20100616
  Receipt Date: 20091224
  Transmission Date: 20101027
  Serious: No
  Sender: FDA-Public Use
  Company Number: US-ASTRAZENECA-2009SE33507

PATIENT
  Age: 1085 Month
  Sex: Female
  Weight: 52.6 kg

DRUGS (4)
  1. ATACAND [Suspect]
     Indication: HYPERTENSION
     Route: 048
     Dates: start: 20091101, end: 20091218
  2. ASPIRIN [Concomitant]
  3. EYE DROP [Concomitant]
  4. VITAMINS [Concomitant]

REACTIONS (1)
  - ALOPECIA [None]
